FAERS Safety Report 5603680-8 (Version None)
Quarter: 2008Q1

REPORT INFORMATION
  Report Type: 
  Country: None (occurrence: None)
  Receive Date: 20080123
  Receipt Date: 20080109
  Transmission Date: 20080703
  Serious: Yes (Hospitalization)
  Sender: FDA-Public Use
  Company Number: 430002J07USA

PATIENT
  Age: 56 Year
  Sex: Female
  Weight: 51.2565 kg

DRUGS (3)
  1. NOVANTRONE [Suspect]
     Indication: MULTIPLE SCLEROSIS
     Dosage: 1 IN 3 MONTHS, INTRAVENOUS
     Route: 042
     Dates: start: 20060206, end: 20070425
  2. IMIPRAMINE [Concomitant]
  3. ADVIL [Concomitant]

REACTIONS (2)
  - CHORDAE TENDINAE RUPTURE [None]
  - PULMONARY OEDEMA [None]
